FAERS Safety Report 4754121-4 (Version None)
Quarter: 2005Q3

REPORT INFORMATION
  Report Type: 
  Country: None (occurrence: None)
  Receive Date: 20050825
  Receipt Date: 20050607
  Transmission Date: 20060218
  Serious: Yes (Other)
  Sender: FDA-Public Use
  Company Number: HQWYE338709JUN05

PATIENT
  Age: 7 Year
  Sex: Female
  Weight: 22.7 kg

DRUGS (1)
  1. CHILDREN'S ADVIL [Suspect]
     Indication: PYREXIA
     Dosage: 1.5 TSP 1X PER 1 DAY, ORAL
     Route: 048
     Dates: start: 20050402, end: 20050402

REACTIONS (1)
  - NIGHTMARE [None]
